FAERS Safety Report 7772525-2 (Version None)
Quarter: 2011Q3

REPORT INFORMATION
  Report Type: 
  Country: None (occurrence: None)
  Receive Date: 20110922
  Receipt Date: 20110630
  Transmission Date: 20111222
  Serious: No
  Sender: FDA-Public Use
  Company Number: US-ASTRAZENECA-2011SE39688

PATIENT
  Age: 25 Year
  Sex: Female

DRUGS (3)
  1. SEROQUEL XR [Suspect]
     Indication: BIPOLAR DISORDER
     Route: 048
     Dates: start: 20110629
  2. ADDERALL 5 [Concomitant]
  3. TRILEPTIL [Concomitant]

REACTIONS (2)
  - PAIN [None]
  - OROPHARYNGEAL PAIN [None]
